FAERS Safety Report 18323376 (Version 1)
Quarter: 2020Q3

REPORT INFORMATION
  Report Type: Spontaneous
  Country: US (occurrence: US)
  Receive Date: 20200929
  Receipt Date: 20200929
  Transmission Date: 20201103
  Serious: No
  Sender: FDA-Public Use
  Company Number: None

PATIENT
  Age: 59 Year
  Sex: Female
  Weight: 114.75 kg

DRUGS (9)
  1. TYLENOL [Concomitant]
     Active Substance: ACETAMINOPHEN
  2. CRANBERRY. [Concomitant]
     Active Substance: CRANBERRY
  3. IBANDRONATE [Concomitant]
     Active Substance: IBANDRONATE SODIUM
  4. SUPPLYAID HAND SANITIZER RRS?HS8 [Suspect]
     Active Substance: ALCOHOL
     Indication: COVID-19 PROPHYLAXIS
     Route: 061
     Dates: start: 20200928, end: 20200928
  5. XIFAXAN [Concomitant]
     Active Substance: RIFAXIMIN
  6. TURMERIC [Concomitant]
     Active Substance: HERBALS\TURMERIC
  7. ALIGN [Concomitant]
     Active Substance: BIFIDOBACTERIUM LONGUM SUBSP. INFANTIS
  8. MULTI WOMENS VITAMINS [Concomitant]
  9. SYNTHROID [Concomitant]
     Active Substance: LEVOTHYROXINE SODIUM

REACTIONS (2)
  - Taste disorder [None]
  - Depressed level of consciousness [None]

NARRATIVE: CASE EVENT DATE: 20200928
